FAERS Safety Report 8134582-3 (Version None)
Quarter: 2012Q1

REPORT INFORMATION
  Report Type: 
  Country: None (occurrence: None)
  Receive Date: 20120214
  Receipt Date: 20120201
  Transmission Date: 20120608
  Serious: Yes (Other)
  Sender: FDA-Public Use
  Company Number: US-ELI_LILLY_AND_COMPANY-US201201002341

PATIENT
  Sex: Female

DRUGS (4)
  1. SYMLIN [Concomitant]
     Dosage: UNK, TID
  2. SEMILENTE [Concomitant]
     Dosage: 120 DF, TID
  3. HUMULIN N [Suspect]
     Dosage: UNK, QD
  4. NOVOLOG [Concomitant]
     Dosage: UNK, TID

REACTIONS (1)
  - NEOPLASM MALIGNANT [None]
